FAERS Safety Report 8108802-5 (Version None)
Quarter: 2012Q1

REPORT INFORMATION
  Report Type: 
  Country: None (occurrence: None)
  Receive Date: 20120202
  Receipt Date: 20120117
  Transmission Date: 20120608
  Serious: No
  Sender: FDA-Public Use
  Company Number: US-AMGEN-USASP2012003329

PATIENT
  Sex: Female

DRUGS (8)
  1. CYMBALTA [Concomitant]
  2. ATENOLOL [Concomitant]
     Dosage: UNK
  3. WELLBUTRIN [Concomitant]
  4. SEASONALE [Concomitant]
  5. PROTONIX [Concomitant]
     Dosage: UNK
  6. ENBREL [Suspect]
     Indication: ANKYLOSING SPONDYLITIS
     Dosage: 50 MG, UNK
  7. HYDROCHLOROTHIAZIDE [Concomitant]
  8. ZANTAC [Concomitant]
     Dosage: UNK

REACTIONS (6)
  - INJECTION SITE WARMTH [None]
  - LATEX ALLERGY [None]
  - INJECTION SITE SWELLING [None]
  - INJECTION SITE ERYTHEMA [None]
  - PYREXIA [None]
  - INJECTION SITE PRURITUS [None]
